FAERS Safety Report 5969297-0 (Version None)
Quarter: 2008Q4

REPORT INFORMATION
  Report Type: 
  Country: None (occurrence: None)
  Receive Date: 20081126
  Receipt Date: 20080109
  Transmission Date: 20090506
  Serious: Yes (Other)
  Sender: FDA-Public Use
  Company Number: JP-PFIZER INC-2008037491

PATIENT
  Sex: Male

DRUGS (2)
  1. MIGLITOL TABLET [Suspect]
     Indication: TYPE 2 DIABETES MELLITUS
     Dosage: DAILY DOSE:50MG
     Route: 048
     Dates: start: 20071215, end: 20080109
  2. NATEGLINIDE [Concomitant]
     Route: 048
     Dates: start: 20071226

REACTIONS (1)
  - HEPATIC FUNCTION ABNORMAL [None]
